FAERS Safety Report 5212528-5 (Version None)
Quarter: 2007Q1

REPORT INFORMATION
  Report Type: 
  Country: None (occurrence: None)
  Receive Date: 20070118
  Receipt Date: 20070104
  Transmission Date: 20070707
  Serious: Yes (Other)
  Sender: FDA-Public Use
  Company Number: GB-MERCK-0701GBR00039

PATIENT
  Age: 53 Year
  Sex: Male
  Weight: 68 kg

DRUGS (6)
  1. COZAAR [Suspect]
     Indication: HYPERTENSION
     Route: 048
     Dates: start: 20050512, end: 20060101
  2. COZAAR [Suspect]
     Route: 048
     Dates: start: 20060101, end: 20060101
  3. COZAAR [Suspect]
     Route: 048
     Dates: start: 20060101
  4. OMEPRAZOLE [Suspect]
     Indication: GASTROOESOPHAGEAL REFLUX DISEASE
     Route: 048
     Dates: start: 20060626, end: 20061213
  5. ACETAMINOPHEN [Concomitant]
     Indication: OSTEOARTHRITIS
     Route: 048
     Dates: start: 20030601
  6. TOLBUTAMIDE [Concomitant]
     Indication: DIABETES MELLITUS
     Route: 048
     Dates: start: 20040401

REACTIONS (4)
  - DIZZINESS [None]
  - DRUG INTERACTION [None]
  - FALL [None]
  - HYPOTENSION [None]
